FAERS Safety Report 10763276 (Version 1)
Quarter: 2015Q1

REPORT INFORMATION
  Report Type: Spontaneous
  Country: US (occurrence: US)
  Receive Date: 20150204
  Receipt Date: 20150204
  Transmission Date: 20150721
  Serious: Yes (Other)
  Sender: FDA-Public Use
  Company Number: US-PAR PHARMACEUTICAL, INC-2015SCPR010346

PATIENT

DRUGS (1)
  1. ADRENALIN [Suspect]
     Active Substance: EPINEPHRINE
     Indication: ANAPHYLACTIC REACTION
     Dosage: 0.5 MG, SINGLE
     Route: 040

REACTIONS (5)
  - Headache [Unknown]
  - Myocardial ischaemia [Unknown]
  - Overdose [Unknown]
  - Unresponsive to stimuli [Unknown]
  - Ventricular tachycardia [Unknown]
